FAERS Safety Report 7377373-3 (Version None)
Quarter: 2011Q1

REPORT INFORMATION
  Report Type: 
  Country: None (occurrence: None)
  Receive Date: 20110328
  Receipt Date: 20110323
  Transmission Date: 20110831
  Serious: No
  Sender: FDA-Public Use
  Company Number: US-PFIZER INC-2011065729

PATIENT
  Sex: Male

DRUGS (4)
  1. SIMVASTATIN/NIACIN [Suspect]
     Dosage: 10 MG, UNK
  2. LIPITOR [Suspect]
     Dosage: UNK MG, UNK
  3. SIMVASTATIN/NIACIN [Suspect]
     Dosage: 5 MG, UNK
  4. SIMVASTATIN/NIACIN [Suspect]
     Dosage: 20 MG, UNK

REACTIONS (3)
  - HEART RATE DECREASED [None]
  - MYALGIA [None]
  - BLOOD PRESSURE ABNORMAL [None]
